FAERS Safety Report 8488388-6 (Version None)
Quarter: 2012Q2

REPORT INFORMATION
  Report Type: 
  Country: None (occurrence: None)
  Receive Date: 20120626
  Receipt Date: 20120615
  Transmission Date: 20120825
  Serious: Yes (Other)
  Sender: FDA-Public Use
  Company Number: AUR-APL-2012-02668

PATIENT
  Age: 52 Year
  Sex: Male

DRUGS (3)
  1. SULFASALAZINE [Concomitant]
  2. METHOTREXATE SODIUM [Concomitant]
  3. METFFORMIN HYDROCHLORIDE [Suspect]

REACTIONS (1)
  - ALCOHOLISM [None]
